FAERS Safety Report 19661126 (Version 1)
Quarter: 2021Q3

REPORT INFORMATION
  Report Type: Spontaneous
  Country: US (occurrence: US)
  Receive Date: 20210805
  Receipt Date: 20210805
  Transmission Date: 20211014
  Serious: No
  Sender: FDA-Public Use
  Company Number: US-GLENMARK PHARMACEUTICALS-2020GMK050098

PATIENT

DRUGS (2)
  1. ADAPALENE. [Suspect]
     Active Substance: ADAPALENE
     Indication: ACNE
     Dosage: UNK, HS (APPLIED TO CHIN DAILY AT NIGHT)
     Route: 061
     Dates: start: 202009, end: 2020
  2. VITAMIN B [Concomitant]
     Active Substance: VITAMIN B
     Indication: PRODUCT USED FOR UNKNOWN INDICATION
     Dosage: UNK
     Route: 065

REACTIONS (3)
  - Application site exfoliation [Recovering/Resolving]
  - Application site erythema [Recovering/Resolving]
  - Application site dryness [Recovering/Resolving]

NARRATIVE: CASE EVENT DATE: 2020
